FAERS Safety Report 6207268-X (Version None)
Quarter: 2009Q2

REPORT INFORMATION
  Report Type: 
  Country: None (occurrence: None)
  Receive Date: 20090522
  Receipt Date: 20090212
  Transmission Date: 20091009
  Serious: No
  Sender: FDA-Public Use
  Company Number: 8042973

PATIENT
  Age: 51 Year
  Sex: Female
  Weight: 81.8 kg

DRUGS (3)
  1. CIMZIA [Suspect]
     Indication: CROHN'S DISEASE
     Dosage: 400 MG SC
     Route: 058
     Dates: start: 20080812
  2. PENTASA [Concomitant]
  3. .. [Concomitant]

REACTIONS (2)
  - ARTHRALGIA [None]
  - DRUG ADMINISTRATION ERROR [None]
